FAERS Safety Report 8151614-7 (Version None)
Quarter: 2012Q1

REPORT INFORMATION
  Report Type: 
  Country: None (occurrence: None)
  Receive Date: 20120220
  Receipt Date: 20120209
  Transmission Date: 20120608
  Serious: Yes (Hospitalization)
  Sender: FDA-Public Use
  Company Number: US-ASTRAZENECA-2012SE08984

PATIENT
  Age: 24 Year
  Sex: Female
  Weight: 72.6 kg

DRUGS (12)
  1. SEROQUEL [Suspect]
     Dosage: 400-600 MG
     Route: 048
     Dates: start: 20070101
  2. SEROQUEL [Suspect]
     Dosage: 350-400 MG
     Route: 048
     Dates: start: 20110101
  3. VITAMIN TAB [Concomitant]
  4. FISH OIL [Concomitant]
  5. KLONOPIN [Concomitant]
  6. LAMICTAL [Concomitant]
  7. SEROQUEL [Suspect]
     Indication: BIPOLAR DISORDER
     Route: 048
     Dates: start: 20070101
  8. SEROQUEL [Suspect]
     Route: 048
  9. LITHIUM CARBONATE [Suspect]
     Route: 048
  10. SEROQUEL [Suspect]
     Dosage: 200 MG IN THE MORNING AND 400 MG AT NIGHT AND AS NEEDED
     Route: 048
  11. PROLIXIN [Concomitant]
  12. TEGRETOL [Concomitant]

REACTIONS (16)
  - PARANOIA [None]
  - AGGRESSION [None]
  - ACNE [None]
  - DECREASED ACTIVITY [None]
  - FATIGUE [None]
  - ABNORMAL DREAMS [None]
  - WEIGHT INCREASED [None]
  - HYPERSEXUALITY [None]
  - SLEEP DISORDER [None]
  - ANGER [None]
  - IMPULSIVE BEHAVIOUR [None]
  - SOMNOLENCE [None]
  - IRRITABILITY [None]
  - DELUSION [None]
  - DISSOCIATIVE IDENTITY DISORDER [None]
  - HYPOMANIA [None]
